FAERS Safety Report 5214706-8 (Version None)
Quarter: 2007Q1

REPORT INFORMATION
  Report Type: 
  Country: None (occurrence: None)
  Receive Date: 20061113
  Receipt Date: 20060207
  Transmission Date: 20070707
  Serious: Yes (Hospitalization)
  Sender: FDA-Public Use
  Company Number: 144536USA

PATIENT
  Age: 49 Year
  Sex: Female
  Weight: 72.5755 kg

DRUGS (1)
  1. AMOXICILLIN + CLAVULANATE POTASSIUM [Suspect]
     Dosage: 875 MG / 125 MG (EVERY 12 HOURS), ORAL
     Route: 048
     Dates: start: 20060112, end: 20060119

REACTIONS (8)
  - HEPATIC FAILURE [None]
  - HEPATOCELLULAR DAMAGE [None]
  - LETHARGY [None]
  - NAUSEA [None]
  - OCULAR ICTERUS [None]
  - PRURITUS [None]
  - URINE COLOUR ABNORMAL [None]
  - YELLOW SKIN [None]
